FAERS Safety Report 5489900-1 (Version None)
Quarter: 2007Q4

REPORT INFORMATION
  Report Type: 
  Country: None (occurrence: None)
  Receive Date: 20071018
  Receipt Date: 20071008
  Transmission Date: 20080405
  Serious: Yes (Hospitalization)
  Sender: FDA-Public Use
  Company Number: NO-PFIZER INC-2007084508

PATIENT
  Sex: Female
  Weight: 73 kg

DRUGS (9)
  1. CELEBRA [Suspect]
     Indication: PAIN
     Route: 048
     Dates: start: 20010612, end: 20020101
  2. VIOXX [Suspect]
     Indication: PAIN
     Dosage: TEXT:12.5 MG UNK UNKU TDD:UNK
     Route: 048
     Dates: start: 20000829, end: 20020101
  3. SOTALOL HCL [Concomitant]
     Route: 048
     Dates: start: 19990824, end: 20020901
  4. ST. JOHN'S WORT [Concomitant]
     Route: 048
     Dates: start: 19981201, end: 20020901
  5. LEVOTHYROXINE SODIUM [Concomitant]
     Route: 048
  6. ALBYL-E [Concomitant]
     Route: 048
     Dates: start: 20000703, end: 20010101
  7. TENORMIN [Concomitant]
     Route: 048
  8. ALL OTHER THERAPEUTIC PRODUCTS [Concomitant]
     Route: 048
  9. PARACET [Concomitant]
     Route: 048

REACTIONS (2)
  - ARRHYTHMIA [None]
  - CEREBROVASCULAR DISORDER [None]
